FAERS Safety Report 7368607-X (Version None)
Quarter: 2011Q1

REPORT INFORMATION
  Report Type: 
  Country: None (occurrence: None)
  Receive Date: 20110310
  Receipt Date: 20110224
  Transmission Date: 20110831
  Serious: Yes (Other)
  Sender: FDA-Public Use
  Company Number: 2011SP009029

PATIENT
  Age: 62 Year
  Sex: Female

DRUGS (3)
  1. RIBAVIRIN [Suspect]
     Indication: HEPATITIS C
     Dates: start: 20050401, end: 20051001
  2. PEGINTERFERON ALFA-2B [Suspect]
     Indication: HEPATITIS C
     Dosage: (3 MCG/KG;QW) (2 MCG/KG;QW)
     Dates: start: 20050401, end: 20050601
  3. PEGINTERFERON ALFA-2B [Suspect]
     Indication: HEPATITIS C
     Dosage: (3 MCG/KG;QW) (2 MCG/KG;QW)
     Dates: start: 20050601, end: 20051001

REACTIONS (24)
  - INFLUENZA LIKE ILLNESS [None]
  - GENERAL PHYSICAL HEALTH DETERIORATION [None]
  - SKIN FISSURES [None]
  - RESTRICTIVE PULMONARY DISEASE [None]
  - RALES [None]
  - C-REACTIVE PROTEIN INCREASED [None]
  - ARTHRALGIA [None]
  - PYREXIA [None]
  - MUSCULAR WEAKNESS [None]
  - COUGH [None]
  - DYSPNOEA [None]
  - HYPERKERATOSIS [None]
  - MICROANGIOPATHY [None]
  - DERMATOMYOSITIS [None]
  - ALDOLASE INCREASED [None]
  - MYALGIA [None]
  - DRUG INEFFECTIVE [None]
  - BLOOD CREATINE PHOSPHOKINASE INCREASED [None]
  - BLOOD LACTATE DEHYDROGENASE INCREASED [None]
  - INTERSTITIAL LUNG DISEASE [None]
  - PO2 DECREASED [None]
  - MUSCLE NECROSIS [None]
  - ANTISYNTHETASE SYNDROME [None]
  - ANTINUCLEAR ANTIBODY POSITIVE [None]
